FAERS Safety Report 5022519-5 (Version None)
Quarter: 2006Q2

REPORT INFORMATION
  Report Type: 
  Country: None (occurrence: None)
  Receive Date: 20060501
  Receipt Date: 20050826
  Transmission Date: 20061013
  Serious: Yes (Other)
  Sender: FDA-Public Use
  Company Number: 005521

PATIENT
  Age: 49 Year
  Sex: Female

DRUGS (1)
  1. CENESTIN [Suspect]
     Indication: MENOPAUSAL SYMPTOMS
     Dosage: 1 TABLET, QD, ORAL
     Route: 048
     Dates: start: 20050805, end: 20050815

REACTIONS (1)
  - MYOCARDIAL INFARCTION [None]
